FAERS Safety Report 7618981-1 (Version None)
Quarter: 2011Q3

REPORT INFORMATION
  Report Type: 
  Country: None (occurrence: None)
  Receive Date: 20110718
  Receipt Date: 20110615
  Transmission Date: 20111222
  Serious: Yes (Hospitalization)
  Sender: FDA-Public Use
  Company Number: US-BAYER-2011-052757

PATIENT
  Age: 75 Year
  Sex: Male
  Weight: 91 kg

DRUGS (19)
  1. ZOCOR [Concomitant]
  2. LUPRON [Concomitant]
     Dosage: UNK
     Dates: start: 20101216, end: 20101216
  3. FLAXSEED OIL [Concomitant]
  4. FISH OIL [Concomitant]
  5. ZOMETA [Concomitant]
  6. ANTINEOPLASTIC AGENTS [Suspect]
     Indication: PROSTATE CANCER METASTATIC
     Dosage: 20 MG/M2, UNK
     Dates: start: 20110106
  7. KEFLEX [Concomitant]
     Dosage: UNK
     Dates: start: 20110101
  8. THERAPEUTIC RADIOPHARMACEUTICALS [Concomitant]
  9. IBUPROFEN [Suspect]
     Indication: OSTEOARTHRITIS
     Dosage: DAILY DOSE 600 MG
     Route: 048
     Dates: start: 20110101
  10. MULTI-VITAMINS [Concomitant]
  11. TAXOTERE [Concomitant]
  12. ASPIRIN [Suspect]
     Dosage: 81 MG, QD
     Route: 048
     Dates: start: 20110101
  13. TENORMIN [Concomitant]
  14. PREDNISONE [Concomitant]
  15. CHONDROITIN SODIUM SULFATE W/GLUCOSAMINE HCL [Concomitant]
  16. KETOCONAZOLE [Concomitant]
  17. CYTOXAN [Concomitant]
  18. CASODEX [Concomitant]
  19. PLAVIX [Suspect]
     Dosage: 75 MG, QD
     Route: 048
     Dates: end: 20110102

REACTIONS (5)
  - MELAENA [None]
  - GASTROINTESTINAL HAEMORRHAGE [None]
  - HAEMOGLOBIN DECREASED [None]
  - DIARRHOEA [None]
  - ABDOMINAL PAIN [None]
